FAERS Safety Report 25743186 (Version 1)
Quarter: 2025Q3

REPORT INFORMATION
  Report Type: Spontaneous
  Country: EU (occurrence: EU)
  Receive Date: 20250830
  Receipt Date: 20250830
  Transmission Date: 20251021
  Serious: Yes (Hospitalization)
  Sender: ACCORD
  Company Number: None

PATIENT
  Age: 78 Year
  Sex: Male
  Weight: 52.6 kg

DRUGS (3)
  1. TEMOZOLOMIDE [Suspect]
     Active Substance: TEMOZOLOMIDE
     Indication: Glioblastoma
     Dosage: D1 TO D5 EVERY MONTH
     Dates: start: 20240611, end: 20250504
  2. BEVACIZUMAB [Suspect]
     Active Substance: BEVACIZUMAB
     Indication: Glioblastoma
     Dosage: STRENGTH: 25 MG/ML
     Dates: start: 20240808, end: 20250123
  3. KARDEGIC [Suspect]
     Active Substance: ASPIRIN DL-LYSINE
     Indication: Transient ischaemic attack
     Dosage: STRENGTH: 75 MG, POWDER FOR ORAL SOLUTION IN SINGLE SACHET-DOSE
     Dates: start: 20230613

REACTIONS (1)
  - Epistaxis [Recovered/Resolved]

NARRATIVE: CASE EVENT DATE: 20241202
